FAERS Safety Report 9412418 (Version 1)
Quarter: 2013Q3

REPORT INFORMATION
  Report Type: Spontaneous
  Country: US (occurrence: US)
  Receive Date: 20130722
  Receipt Date: 20130722
  Transmission Date: 20140515
  Serious: Yes (Other)
  Sender: FDA-Public Use
  Company Number: US-ELI_LILLY_AND_COMPANY-US201307003970

PATIENT
  Age: 24 Year
  Sex: Female
  Weight: 56.69 kg

DRUGS (14)
  1. CYMBALTA [Suspect]
     Dosage: UNK, UNKNOWN
     Route: 065
  2. NASACORT [Concomitant]
     Dosage: UNK, UNKNOWN
     Route: 065
  3. OMNICEF [Concomitant]
     Dosage: UNK, UNKNOWN
     Route: 065
  4. ADVAIR [Concomitant]
     Dosage: UNK, UNKNOWN
     Route: 065
  5. ALBUTEROL [Concomitant]
     Dosage: 90 UG, UNKNOWN
     Route: 065
  6. SINGULAIR [Concomitant]
     Dosage: 10 MG, UNKNOWN
     Route: 065
  7. PROTONIX [Concomitant]
     Dosage: 40 MG, UNK
     Route: 065
  8. SYNTHROID [Concomitant]
     Dosage: 50 UG, UNKNOWN
     Route: 065
  9. LEVAQUIN [Concomitant]
     Dosage: 500 MG, UNKNOWN
     Route: 065
  10. GANI-TUSS DM NR [Concomitant]
     Dosage: UNK, UNKNOWN
     Route: 065
  11. UROGESIC BLUE [Concomitant]
     Dosage: UNK, UNKNOWN
     Route: 065
  12. SULFAMETHOXAZOLE [Concomitant]
     Dosage: UNK, UNKNOWN
     Route: 065
  13. FLUCONAZOLE [Concomitant]
     Dosage: 150 MG, UNKNOWN
     Route: 065
  14. NOTUSS [Concomitant]
     Dosage: UNK, UNKNOWN
     Route: 065

REACTIONS (1)
  - Exposure during pregnancy [Unknown]
